FAERS Safety Report 9227792 (Version 1)
Quarter: 2013Q1

REPORT INFORMATION
  Report Type: Spontaneous
  Country: US (occurrence: None)
  Receive Date: 20121012
  Receipt Date: 20121012
  Transmission Date: 20140127
  Serious: Yes (Death, Hospitalization)
  Sender: FDA-Public Use
  Company Number: 2012SP013393

PATIENT
  Age: 53 Year
  Sex: Female

DRUGS (1)
  1. TEMODAR [Suspect]
     Indication: GLIOBLASTOMA MULTIFORME
     Route: 048
     Dates: start: 200910, end: 200911

REACTIONS (2)
  - Hepatotoxicity [None]
  - Disease progression [None]
